FAERS Safety Report 7508915-2 (Version None)
Quarter: 2011Q2

REPORT INFORMATION
  Report Type: 
  Country: None (occurrence: None)
  Receive Date: 20110527
  Receipt Date: 20110516
  Transmission Date: 20111010
  Serious: Yes (Other)
  Sender: FDA-Public Use
  Company Number: PHHY2011US37404

PATIENT
  Sex: Male
  Weight: 107.3 kg

DRUGS (6)
  1. FENTANYL [Concomitant]
     Indication: PAIN
     Dosage: 12.5 MG, ONCE IN THREE DAYS
     Route: 062
  2. GILENYA [Suspect]
     Indication: RELAPSING-REMITTING MULTIPLE SCLEROSIS
     Dosage: 0.5 MG, QD
     Route: 048
     Dates: start: 20110113
  3. ZANAFLEX [Concomitant]
     Indication: MUSCLE SPASTICITY
     Dosage: 1 DF, BID
     Route: 048
  4. PRILOSEC [Concomitant]
     Indication: GASTROOESOPHAGEAL REFLUX DISEASE
     Dosage: 1 DF, BID
     Route: 048
  5. SIMVASTATIN [Concomitant]
     Indication: BLOOD CHOLESTEROL INCREASED
     Dosage: 1 DF, DAILY
     Route: 048
  6. NICARDIPINE HCL [Concomitant]
     Indication: HYPERTENSION
     Dosage: 1 DF, DAILY
     Route: 048

REACTIONS (4)
  - BLOOD PRESSURE INCREASED [None]
  - VISUAL IMPAIRMENT [None]
  - OEDEMA PERIPHERAL [None]
  - RETINAL TEAR [None]
